FAERS Safety Report 15284229 (Version 1)
Quarter: 2018Q3

REPORT INFORMATION
  Report Type: Report from Study
  Country: DE (occurrence: DE)
  Receive Date: 20180816
  Receipt Date: 20180816
  Transmission Date: 20181010
  Serious: Yes (Hospitalization)
  Sender: FDA-Public Use
  Company Number: DE-PFIZER INC-2018324237

PATIENT
  Age: 12 Year
  Sex: Female
  Weight: 29 kg

DRUGS (7)
  1. ROACTEMRA [Suspect]
     Active Substance: TOCILIZUMAB
     Dosage: 360 MG, CYCLIC ((DAILY DOSE: 360 MG MILLGRAM(S) EVERY 2 WEEKS))
     Route: 042
     Dates: start: 20140101
  2. ANAKINRA [Suspect]
     Active Substance: ANAKINRA
     Indication: STILL^S DISEASE
     Dosage: UNK
     Dates: start: 20130101, end: 20130215
  3. IBUPROFEN. [Suspect]
     Active Substance: IBUPROFEN
     Indication: STILL^S DISEASE
     Dosage: 400 MG, UNK
     Route: 048
     Dates: start: 20161019
  4. ROACTEMRA [Suspect]
     Active Substance: TOCILIZUMAB
     Indication: STILL^S DISEASE
     Dosage: 360 MG, CYCLIC (DAILY DOSE: 360 MG MILLGRAM(S) EVERY 2 WEEKS)
     Route: 042
     Dates: start: 20130430
  5. INDOMETACIN [Concomitant]
     Active Substance: INDOMETHACIN
     Indication: STILL^S DISEASE
     Dosage: 25 MG, UNK
     Route: 065
     Dates: start: 20130401
  6. OMEPRAZOL [Concomitant]
     Active Substance: OMEPRAZOLE
     Indication: PROPHYLAXIS
     Dosage: 20 MG, 1X/DAY (DAILY DOSE: 20 MG MILLGRAM(S) EVERY DAYS)
     Route: 048
     Dates: start: 20140401
  7. METHOTREXATE SODIUM. [Suspect]
     Active Substance: METHOTREXATE SODIUM
     Indication: JUVENILE IDIOPATHIC ARTHRITIS
     Dosage: 1 DF, WEEKLY (DAILY DOSE: 1 DF DOSAGE FORM EVERY WEEKS)
     Route: 058
     Dates: start: 20130213, end: 20141105

REACTIONS (3)
  - Sinusitis [Recovered/Resolved]
  - Headache [Recovered/Resolved]
  - Conjunctivitis [Recovered/Resolved]

NARRATIVE: CASE EVENT DATE: 201611
